FAERS Safety Report 13625595 (Version 1)
Quarter: 2017Q2

REPORT INFORMATION
  Report Type: Spontaneous
  Country: US (occurrence: US)
  Receive Date: 20170607
  Receipt Date: 20170607
  Transmission Date: 20170830
  Serious: Yes (Hospitalization)
  Sender: FDA-Public Use
  Company Number: None

PATIENT
  Age: 62 Year
  Sex: Male

DRUGS (2)
  1. ASPIRIN. [Suspect]
     Active Substance: ASPIRIN
     Route: 048
     Dates: start: 20111122
  2. CLOPIDOGREL [Suspect]
     Active Substance: CLOPIDOGREL BISULFATE
     Indication: CORONARY ARTERIAL STENT INSERTION
     Route: 048
     Dates: start: 20150812, end: 20170503

REACTIONS (10)
  - Iron deficiency anaemia [None]
  - Arteriovenous malformation [None]
  - Transfusion related complication [None]
  - Asthenia [None]
  - Melaena [None]
  - Large intestine polyp [None]
  - Lethargy [None]
  - Gastritis [None]
  - Duodenitis [None]
  - Dizziness [None]

NARRATIVE: CASE EVENT DATE: 20160806
